FAERS Safety Report 4946647-5 (Version None)
Quarter: 2006Q1

REPORT INFORMATION
  Report Type: 
  Country: None (occurrence: None)
  Receive Date: 20060201
  Receipt Date: 20051215
  Transmission Date: 20060701
  Serious: No
  Sender: FDA-Public Use
  Company Number: 2005PV005906

PATIENT
  Sex: Female

DRUGS (4)
  1. BYETTA [Suspect]
     Dosage: SEE IMAGE, SC
     Route: 058
     Dates: start: 20050101, end: 20050101
  2. BYETTA [Suspect]
     Dosage: SEE IMAGE, SC
     Route: 058
     Dates: start: 20050101, end: 20050101
  3. BYETTA [Suspect]
     Dosage: SEE IMAGE, SC
     Route: 058
     Dates: start: 20050101
  4. AMARYL [Concomitant]

REACTIONS (1)
  - OEDEMA PERIPHERAL [None]
